FAERS Safety Report 14562788 (Version 2)
Quarter: 2018Q1

REPORT INFORMATION
  Report Type: Spontaneous
  Country: US (occurrence: US)
  Receive Date: 20180222
  Receipt Date: 20180226
  Transmission Date: 20180509
  Serious: No
  Sender: FDA-Public Use
  Company Number: US-LUNDBECK-DKLU2043488

PATIENT
  Sex: Male

DRUGS (1)
  1. NORTHERA [Suspect]
     Active Substance: DROXIDOPA
     Indication: PRODUCT USED FOR UNKNOWN INDICATION
     Dosage: TITRATION COMPLETE
     Route: 048
     Dates: start: 201704

REACTIONS (4)
  - Lip injury [Not Recovered/Not Resolved]
  - Inability to afford medication [None]
  - Limb injury [Not Recovered/Not Resolved]
  - Fall [Not Recovered/Not Resolved]
